FAERS Safety Report 19300266 (Version 1)
Quarter: 2021Q2

REPORT INFORMATION
  Report Type: Spontaneous
  Country: TR (occurrence: TR)
  Receive Date: 20210524
  Receipt Date: 20210524
  Transmission Date: 20210717
  Serious: Yes (Life-Threatening, Hospitalization, Other)
  Sender: FDA-Public Use
  Company Number: TR-LUPIN PHARMACEUTICALS INC.-2021-07713

PATIENT
  Age: 6 Year

DRUGS (6)
  1. CLOBAZAM. [Suspect]
     Active Substance: CLOBAZAM
     Indication: EPILEPTIC ENCEPHALOPATHY
     Dosage: 0.75 MILLIGRAM/KILOGRAM, QD
     Route: 065
  2. MEROPENEM. [Interacting]
     Active Substance: MEROPENEM
     Indication: PNEUMONIA
     Dosage: UNK
     Route: 065
  3. VIGABATRIN. [Concomitant]
     Active Substance: VIGABATRIN
     Indication: EPILEPTIC ENCEPHALOPATHY
     Dosage: 38 MILLIGRAM/KILOGRAM, QD
     Route: 065
  4. BACLOFEN. [Concomitant]
     Active Substance: BACLOFEN
     Indication: PRODUCT USED FOR UNKNOWN INDICATION
     Dosage: 1.2 MILLIGRAM/KILOGRAM, QD
     Route: 065
  5. CLOBAZAM. [Interacting]
     Active Substance: CLOBAZAM
     Dosage: 0.5 MILLIGRAM/KILOGRAM, QD
     Route: 065
  6. SULTHIAME [Concomitant]
     Active Substance: SULTHIAME
     Indication: EPILEPTIC ENCEPHALOPATHY
     Dosage: 15 MILLIGRAM/KILOGRAM, QD
     Route: 065

REACTIONS (5)
  - Drug interaction [Unknown]
  - Respiratory arrest [Recovering/Resolving]
  - Hypercapnia [Unknown]
  - Miosis [Recovering/Resolving]
  - Hypersomnia [Unknown]
